FAERS Safety Report 23627116 (Version 2)
Quarter: 2024Q1

REPORT INFORMATION
  Report Type: Report from Study
  Country: KR (occurrence: KR)
  Receive Date: 20240313
  Receipt Date: 20240319
  Transmission Date: 20240409
  Serious: Yes (Hospitalization, Other)
  Sender: FDA-Public Use
  Company Number: KR-GILEAD-2024-0665334

PATIENT
  Sex: Male

DRUGS (23)
  1. BICTEGRAVIR\EMTRICITABINE\TENOFOVIR ALAFENAMIDE [Suspect]
     Active Substance: BICTEGRAVIR\EMTRICITABINE\TENOFOVIR ALAFENAMIDE
     Indication: HIV infection
     Dosage: 1 DOSAGE FORM, QD
     Route: 048
     Dates: start: 20230926
  2. DEXILANT [Concomitant]
     Active Substance: DEXLANSOPRAZOLE
  3. RYZODEG 70/30 [Concomitant]
     Active Substance: INSULIN ASPART\INSULIN DEGLUDEC
  4. BERAPROST [Concomitant]
     Active Substance: BERAPROST
  5. FEBUXOSTAT [Concomitant]
     Active Substance: FEBUXOSTAT
  6. DIABEX [Concomitant]
     Active Substance: METFORMIN HYDROCHLORIDE
  7. ADALAT [Concomitant]
     Active Substance: NIFEDIPINE
  8. CRESTOR [Concomitant]
     Active Substance: ROSUVASTATIN CALCIUM
  9. OLMESARTAN MEDOXOMIL [Concomitant]
     Active Substance: OLMESARTAN MEDOXOMIL
  10. JANUVIA [Concomitant]
     Active Substance: SITAGLIPTIN PHOSPHATE
  11. EYE DROPS [TETRYZOLINE HYDROCHLORIDE] [Concomitant]
  12. KRIX [Concomitant]
  13. GASTER [Concomitant]
     Active Substance: FAMOTIDINE
  14. DEXTROSE;POTASSIUM CHLORIDE;SODIUM CHLORIDE [Concomitant]
  15. SODIUM CHLORIDE [Concomitant]
     Active Substance: SODIUM CHLORIDE
  16. FENTANYL CITRATE [Concomitant]
     Active Substance: FENTANYL CITRATE
  17. FENTANYL CITRATE [Concomitant]
     Active Substance: FENTANYL CITRATE
  18. ACUPAN [Concomitant]
     Active Substance: NEFOPAM HYDROCHLORIDE
  19. RAMOSETRON HYDROCHLORIDE [Concomitant]
     Active Substance: RAMOSETRON HYDROCHLORIDE
  20. NEXIUM [Concomitant]
     Active Substance: ESOMEPRAZOLE MAGNESIUM
  21. PAMISOL [IOPAMIDOL] [Concomitant]
  22. GASMOTIN SR [Concomitant]
  23. TEGOPRAZAN [Concomitant]
     Active Substance: TEGOPRAZAN

REACTIONS (4)
  - Cholecystitis acute [Recovered/Resolved]
  - Hepatitis C [Recovering/Resolving]
  - Chronic obstructive pulmonary disease [Recovering/Resolving]
  - Sleep disorder [Recovered/Resolved]

NARRATIVE: CASE EVENT DATE: 20231225
